FAERS Safety Report 8971765 (Version 1)
Quarter: 2012Q4

REPORT INFORMATION
  Report Type: 
  Country: JP (occurrence: JP)
  Receive Date: 20121217
  Receipt Date: 20121217
  Transmission Date: 20130627
  Serious: Yes (Life-Threatening, Other)
  Sender: FDA-Public Use
  Company Number: JP-ASTELLAS-2012JP010891

PATIENT
  Age: 19 Year
  Sex: Male
  Weight: 77 kg

DRUGS (3)
  1. PROGRAF [Suspect]
     Indication: BONE MARROW TRANSPLANT
     Dosage: 0.03 mg/kg, Continuous
     Route: 041
     Dates: start: 20120816, end: 20121115
  2. PROGRAF [Suspect]
     Indication: GRAFT VERSUS HOST DISEASE
  3. ENDOXAN /00021101/ [Concomitant]
     Route: 065

REACTIONS (3)
  - Drug ineffective [Unknown]
  - Graft versus host disease [Unknown]
  - Pericardial effusion [Recovering/Resolving]
